FAERS Safety Report 24202395 (Version 1)
Quarter: 2024Q3

REPORT INFORMATION
  Report Type: Spontaneous
  Country: US (occurrence: US)
  Receive Date: 20240813
  Receipt Date: 20240813
  Transmission Date: 20241017
  Serious: Yes (Hospitalization, Other)
  Sender: ZYDUS PHARM
  Company Number: US-CADILA HEALTHCARE LIMITED-US-ZYDUS-110505

PATIENT

DRUGS (3)
  1. PROPRANOLOL [Suspect]
     Active Substance: PROPRANOLOL HYDROCHLORIDE
     Indication: Product used for unknown indication
     Dosage: 25 TABLETS OF 10 MILLIGRAM
     Route: 065
  2. KEPPRA [Suspect]
     Active Substance: LEVETIRACETAM
     Indication: Product used for unknown indication
     Dosage: 25 TABLETS OF 500 MILLIGRAM
     Route: 065
  3. LEVOTHYROXINE [Suspect]
     Active Substance: LEVOTHYROXINE\LEVOTHYROXINE SODIUM
     Indication: Product used for unknown indication
     Dosage: 30-40 TABLETS OF 150 MICROGRAM
     Route: 065

REACTIONS (5)
  - Thyrotoxic crisis [Unknown]
  - Blood creatine phosphokinase increased [Unknown]
  - Blood bilirubin increased [Unknown]
  - Intentional product misuse [Unknown]
  - Intentional overdose [Unknown]
